FAERS Safety Report 21472502 (Version 1)
Quarter: 2022Q4

REPORT INFORMATION
  Report Type: Spontaneous
  Country: US (occurrence: US)
  Receive Date: 20221018
  Receipt Date: 20221018
  Transmission Date: 20230113
  Serious: No
  Sender: FDA-Public Use
  Company Number: US-GE HEALTHCARE-2022CSU006369

PATIENT
  Sex: Male

DRUGS (4)
  1. OMNIPAQUE [Suspect]
     Active Substance: IOHEXOL
     Indication: Computerised tomogram thorax
     Dosage: 83 ML (3 ML.SEC), SINGLE
     Route: 042
     Dates: start: 20220721, end: 20220721
  2. OMNIPAQUE [Suspect]
     Active Substance: IOHEXOL
     Indication: Pulmonary embolism
  3. ALEVE [Concomitant]
     Active Substance: NAPROXEN SODIUM
  4. MOTRIN [Concomitant]
     Active Substance: IBUPROFEN

REACTIONS (2)
  - Peripheral swelling [Recovering/Resolving]
  - Rash pruritic [Recovering/Resolving]

NARRATIVE: CASE EVENT DATE: 20220723
